FAERS Safety Report 10204344 (Version 2)
Quarter: 2014Q2

REPORT INFORMATION
  Report Type: Report from Study
  Country: US (occurrence: US)
  Receive Date: 20140529
  Receipt Date: 20140630
  Transmission Date: 20141212
  Serious: Yes (Other)
  Sender: FDA-Public Use
  Company Number: US-ALEXION-A201401722

PATIENT
  Sex: 0

DRUGS (17)
  1. SOLIRIS [Suspect]
     Indication: HAEMOLYTIC URAEMIC SYNDROME
     Dosage: 1200 MG, Q2W
     Route: 042
     Dates: start: 20130514
  2. ASA [Concomitant]
     Indication: PRODUCT USED FOR UNKNOWN INDICATION
     Dosage: 81 MG, QD
     Route: 065
     Dates: start: 20130503
  3. CALCITRIOL [Concomitant]
     Indication: PRODUCT USED FOR UNKNOWN INDICATION
     Dosage: 0.25 ?G, QID
     Route: 065
     Dates: start: 20130503
  4. CALCIUM CARBONATE [Concomitant]
     Indication: PRODUCT USED FOR UNKNOWN INDICATION
     Dosage: 1000 MG, BID
     Route: 065
     Dates: start: 20130503
  5. CONCERTA [Concomitant]
     Indication: ATTENTION DEFICIT/HYPERACTIVITY DISORDER
     Dosage: 18 MG, QD
     Route: 065
     Dates: start: 20130503
  6. COREG [Concomitant]
     Indication: HYPERTENSION
     Dosage: 12.5 MG, BID
     Route: 065
     Dates: start: 20130503
  7. EPOGEN [Concomitant]
     Indication: ERYTHROPOIESIS ABNORMAL
     Dosage: 5000 UT, UNK
     Route: 042
     Dates: start: 20130503
  8. GENOTROPIN [Concomitant]
     Indication: PRODUCT USED FOR UNKNOWN INDICATION
     Dosage: 3.5 MG, QD
     Route: 065
     Dates: start: 20130503
  9. IRON DEXTRAN [Concomitant]
     Indication: MINERAL SUPPLEMENTATION
     Dosage: 75 MG, QW
     Route: 042
     Dates: start: 20130503
  10. LISINOPRIL [Concomitant]
     Indication: HYPERTENSION
     Dosage: 10 MG, QD
     Route: 065
     Dates: start: 20130503
  11. MIRALAX                            /00754501/ [Concomitant]
     Indication: PRODUCT USED FOR UNKNOWN INDICATION
     Dosage: 68 G, QD
     Route: 042
     Dates: start: 20130503
  12. MULTIVITAMIN                       /00097801/ [Concomitant]
     Indication: PRODUCT USED FOR UNKNOWN INDICATION
     Dosage: UNK, DAILY
     Route: 065
     Dates: start: 20130503
  13. RENAGEL                            /01459901/ [Concomitant]
     Indication: PRODUCT USED FOR UNKNOWN INDICATION
     Dosage: 1600 MG, QID
     Route: 065
     Dates: start: 20130503
  14. RENAGEL                            /01459901/ [Concomitant]
     Dosage: 800 TO 1600 MG
     Route: 065
     Dates: start: 20130503
  15. SODIUM BICARBONATE [Concomitant]
     Indication: PRODUCT USED FOR UNKNOWN INDICATION
     Dosage: 1950 MG, BID
     Route: 065
     Dates: start: 20130503
  16. VITAMIN D                          /00107901/ [Concomitant]
     Indication: PRODUCT USED FOR UNKNOWN INDICATION
     Dosage: 5000 UT, UNK
     Route: 065
     Dates: start: 20130503
  17. ZOLOFT [Concomitant]
     Indication: ANTIDEPRESSANT THERAPY
     Dosage: 25 MG, QD
     Route: 065
     Dates: start: 20130503

REACTIONS (5)
  - Multi-organ disorder [Unknown]
  - Weight increased [Unknown]
  - Wheezing [Unknown]
  - Fluid overload [Unknown]
  - Anxiety [Not Recovered/Not Resolved]
